FAERS Safety Report 8134899-2 (Version None)
Quarter: 2012Q1

REPORT INFORMATION
  Report Type: 
  Country: None (occurrence: None)
  Receive Date: 20120214
  Receipt Date: 20120203
  Transmission Date: 20120608
  Serious: Yes (Hospitalization)
  Sender: FDA-Public Use
  Company Number: CA-JNJFOC-20120203175

PATIENT
  Sex: Female
  Weight: 59 kg

DRUGS (3)
  1. PREDNISONE TAB [Concomitant]
     Route: 065
  2. IMURAN [Concomitant]
     Route: 065
  3. REMICADE [Suspect]
     Indication: CROHN'S DISEASE
     Route: 042
     Dates: start: 20110222

REACTIONS (1)
  - INTESTINAL RESECTION [None]
